FAERS Safety Report 5392134-2 (Version None)
Quarter: 2007Q3

REPORT INFORMATION
  Report Type: 
  Country: None (occurrence: None)
  Receive Date: 20070718
  Receipt Date: 20070718
  Transmission Date: 20080115
  Serious: Yes (Hospitalization)
  Sender: FDA-Public Use
  Company Number: None

PATIENT
  Age: 81 Year
  Sex: Male

DRUGS (2)
  1. ROSIGLITAZONE [Suspect]
     Dosage: 4MG BID PO
     Route: 048
     Dates: start: 20070306, end: 20070427
  2. ATENOLOL [Suspect]
     Dosage: 50MG EVERY DAY PO
     Route: 048
     Dates: start: 20070220, end: 20070427

REACTIONS (2)
  - CARDIAC FAILURE CONGESTIVE [None]
  - HYPOXIA [None]
